FAERS Safety Report 8830591 (Version 1)
Quarter: 2012Q4

REPORT INFORMATION
  Report Type: 
  Country: US (occurrence: US)
  Receive Date: 20121008
  Receipt Date: 20121008
  Transmission Date: 20130627
  Serious: No
  Sender: FDA-Public Use
  Company Number: US-PFIZER INC-2012244672

PATIENT
  Age: 79 Year
  Sex: Female
  Weight: 53.52 kg

DRUGS (6)
  1. DETROL LA [Suspect]
     Indication: HYPERTONIC BLADDER
     Dosage: 4 mg, 1x/day
     Route: 048
     Dates: end: 201209
  2. COUMADIN [Concomitant]
     Dosage: UNK
  3. INDAPAMIDE [Concomitant]
     Indication: HYPERTENSION
     Dosage: UNK
  4. MICARDIS [Concomitant]
     Dosage: UNK
  5. DICYCLOMINE [Concomitant]
     Dosage: UNK
  6. SYNTHROID [Concomitant]
     Dosage: UNK

REACTIONS (1)
  - Drug ineffective [Unknown]
